FAERS Safety Report 5918605-5 (Version None)
Quarter: 2008Q4

REPORT INFORMATION
  Report Type: 
  Country: None (occurrence: None)
  Receive Date: 20081014
  Receipt Date: 20081014
  Transmission Date: 20090506
  Serious: Yes (Other)
  Sender: FDA-Public Use
  Company Number: None

PATIENT
  Age: 60 Year
  Sex: Female
  Weight: 68.0396 kg

DRUGS (2)
  1. FOSAMAX [Suspect]
     Dosage: ONE TABLET WEEKLY PO
     Route: 048
     Dates: start: 20061002, end: 20061005
  2. LUMIGAN [Concomitant]

REACTIONS (4)
  - BACK PAIN [None]
  - MIDDLE INSOMNIA [None]
  - MOVEMENT DISORDER [None]
  - PAIN [None]
